FAERS Safety Report 20391713 (Version 1)
Quarter: 2022Q1

REPORT INFORMATION
  Report Type: Spontaneous
  Country: US (occurrence: None)
  Receive Date: 20220128
  Receipt Date: 20220128
  Transmission Date: 20220423
  Serious: Yes (unspecified)
  Sender: FDA-Public Use
  Company Number: None

PATIENT
  Age: 60 Year
  Sex: Male
  Weight: 113.4 kg

DRUGS (2)
  1. CIALIS [Suspect]
     Active Substance: TADALAFIL
  2. CIALIS [Concomitant]
     Active Substance: TADALAFIL
     Dates: start: 20220113, end: 20220127

REACTIONS (2)
  - Tinnitus [None]
  - Headache [None]

NARRATIVE: CASE EVENT DATE: 20220127
